FAERS Safety Report 5060651-0 (Version None)
Quarter: 2006Q3

REPORT INFORMATION
  Report Type: 
  Country: None (occurrence: None)
  Receive Date: 20060725
  Receipt Date: 20060705
  Transmission Date: 20061208
  Serious: Yes (Hospitalization)
  Sender: FDA-Public Use
  Company Number: PHBS2006JP10230

PATIENT
  Age: 50 Year
  Sex: Female

DRUGS (10)
  1. TOFRANIL [Suspect]
     Indication: MAJOR DEPRESSION
     Dosage: 150 MG/D
     Route: 048
  2. RISPERIDONE [Suspect]
     Dosage: 6 MG/D
     Route: 065
  3. OLANZAPINE [Suspect]
     Dosage: 25 MG/D
     Route: 065
  4. CHLORPROMAZINE [Suspect]
     Dosage: 25 MG/D
     Route: 065
  5. SULPIRIDE (NGX) [Suspect]
     Dosage: 150 MG/D
     Route: 065
  6. AMOXAPINE [Suspect]
     Dosage: 225 MG/D
     Route: 065
  7. PAROXETINE [Suspect]
     Dosage: 20 MG/D
     Route: 065
  8. PAROXETINE [Suspect]
     Dosage: 40 MG/D
     Route: 065
  9. FLUVOXAMINE MALEATE [Suspect]
     Dosage: 50 MG/D
     Route: 065
  10. LITHIUM CARBONATE [Concomitant]
     Dosage: 800 MG/D
     Route: 065

REACTIONS (4)
  - BLOOD CREATINE PHOSPHOKINASE INCREASED [None]
  - MUSCLE RIGIDITY [None]
  - NEUROLEPTIC MALIGNANT SYNDROME [None]
  - PYREXIA [None]
